FAERS Safety Report 4471644-6 (Version None)
Quarter: 2004Q4

REPORT INFORMATION
  Report Type: 
  Country: None (occurrence: None)
  Receive Date: 20041012
  Receipt Date: 20041005
  Transmission Date: 20050328
  Serious: Yes (Other)
  Sender: FDA-Public Use
  Company Number: 200417671US

PATIENT
  Sex: Male

DRUGS (1)
  1. LOVENOX [Suspect]

REACTIONS (3)
  - DRUG EXPOSURE DURING PREGNANCY [None]
  - FEMUR FRACTURE [None]
  - NEONATAL DISORDER [None]
